FAERS Safety Report 5726358-9 (Version None)
Quarter: 2008Q2

REPORT INFORMATION
  Report Type: 
  Country: None (occurrence: None)
  Receive Date: 20080502
  Receipt Date: 20080423
  Transmission Date: 20081010
  Serious: Yes (Death)
  Sender: FDA-Public Use
  Company Number: US-WYE-H03398608

PATIENT
  Age: 57 Year
  Sex: Male

DRUGS (10)
  1. TIGECYCLINE [Suspect]
     Indication: OSTEOMYELITIS
     Route: 042
     Dates: start: 20070426, end: 20070628
  2. TIGECYCLINE [Suspect]
     Indication: MYCOBACTERIUM CHELONEI INFECTION
  3. CRESTOR [Concomitant]
     Dates: start: 20070401, end: 20070601
  4. LORTAB [Concomitant]
     Dosage: 10/500 MG 1-2 EVERY 4 -6 HOURS AS NEEDED
     Dates: start: 20070401
  5. SINGULAIR [Concomitant]
     Dates: start: 20070401
  6. HALCION [Concomitant]
     Dates: start: 20070401
  7. BIAXIN [Concomitant]
     Dates: start: 20070401
  8. AMIKACIN [Concomitant]
     Indication: MYCOBACTERIUM CHELONEI INFECTION
     Route: 042
     Dates: start: 20070424, end: 20070522
  9. AMIKACIN [Concomitant]
     Indication: OSTEOMYELITIS
  10. NEURONTIN [Concomitant]
     Indication: PAIN
     Dates: start: 20070401

REACTIONS (6)
  - ATRIAL FIBRILLATION [None]
  - HYPOVOLAEMIC SHOCK [None]
  - MULTI-ORGAN FAILURE [None]
  - PANCREATITIS HAEMORRHAGIC [None]
  - PANCREATITIS NECROTISING [None]
  - RENAL FAILURE ACUTE [None]
